FAERS Safety Report 16677142 (Version 1)
Quarter: 2019Q3

REPORT INFORMATION
  Report Type: Report from Study
  Country: VN (occurrence: VN)
  Receive Date: 20190807
  Receipt Date: 20190807
  Transmission Date: 20191004
  Serious: Yes (Other)
  Sender: FDA-Public Use
  Company Number: VN-ASTELLAS-2019US031543

PATIENT
  Age: 38 Year
  Sex: Male
  Weight: 55 kg

DRUGS (1)
  1. ERLOTINIB [Suspect]
     Active Substance: ERLOTINIB
     Indication: LUNG NEOPLASM MALIGNANT
     Route: 048
     Dates: end: 2019

REACTIONS (3)
  - Rash pruritic [Unknown]
  - Eye swelling [Unknown]
  - Swelling [Unknown]

NARRATIVE: CASE EVENT DATE: 20190410
